FAERS Safety Report 6663073-1 (Version None)
Quarter: 2010Q2

REPORT INFORMATION
  Report Type: 
  Country: None (occurrence: None)
  Receive Date: 20100401
  Receipt Date: 20100329
  Transmission Date: 20101027
  Serious: Yes (Other)
  Sender: FDA-Public Use
  Company Number: US-ELI_LILLY_AND_COMPANY-2005PV001576

PATIENT
  Sex: Female
  Weight: 111.11 kg

DRUGS (10)
  1. EXENATIDE [Suspect]
     Indication: TYPE 2 DIABETES MELLITUS
     Dosage: 5 UG, 2/D
     Route: 058
     Dates: start: 20050824
  2. EXENATIDE [Suspect]
     Dosage: 10 UG, 2/D
     Route: 058
     Dates: start: 20100327
  3. LIPITOR [Concomitant]
     Dosage: 40 MG, DAILY (1/D)
     Route: 048
  4. ACTOS [Concomitant]
     Indication: TYPE 2 DIABETES MELLITUS
     Dosage: UNK, UNK
  5. METFORMIN (GLUCOPHAGE) [Concomitant]
     Indication: TYPE 2 DIABETES MELLITUS
     Dosage: 1000 MG, 2/D
     Route: 048
  6. ACCUPRIL [Concomitant]
     Dosage: 10 MG, DAILY (1/D)
     Route: 048
  7. ASPIRIN [Concomitant]
     Dosage: 81 MG, DAILY (1/D)
     Route: 048
  8. FERROUS SULFATE TAB [Concomitant]
     Dosage: 67 MG, DAILY (1/D)
     Route: 048
  9. TRIAMINICIN /00384601/ [Concomitant]
     Dosage: UNK, DAILY (1/D)
     Route: 048
  10. TRIAMTERENE [Concomitant]
     Dosage: UNK, DAILY (1/D)

REACTIONS (10)
  - ABDOMINAL PAIN UPPER [None]
  - BLOOD GLUCOSE INCREASED [None]
  - DRUG DOSE OMISSION [None]
  - FALL [None]
  - KNEE OPERATION [None]
  - MUSCULOSKELETAL STIFFNESS [None]
  - NAUSEA [None]
  - PAIN [None]
  - VOMITING [None]
  - WEIGHT DECREASED [None]
